FAERS Safety Report 14895080 (Version 3)
Quarter: 2018Q2

REPORT INFORMATION
  Report Type: Spontaneous
  Country: JP (occurrence: JP)
  Receive Date: 20180515
  Receipt Date: 20180529
  Transmission Date: 20180711
  Serious: Yes (Hospitalization)
  Sender: FDA-Public Use
  Company Number: JP-ROCHE-2124176

PATIENT
  Age: 77 Year
  Sex: Female
  Weight: 51 kg

DRUGS (12)
  1. AKINETON [Concomitant]
     Active Substance: BIPERIDEN HYDROCHLORIDE
     Dosage: DOSAGE IS UNCERTAIN.
     Route: 048
  2. METHOTREXATE. [Concomitant]
     Active Substance: METHOTREXATE
     Indication: RHEUMATOID ARTHRITIS
     Dosage: DOSAGE IS UNCERTAIN.
     Route: 065
  3. RISPERIDONE. [Concomitant]
     Active Substance: RISPERIDONE
     Dosage: DOSAGE IS UNCERTAIN.
     Route: 048
  4. ACETAMINOPHEN. [Suspect]
     Active Substance: ACETAMINOPHEN
     Indication: PAIN
     Dosage: DOSAGE IS UNCERTAIN.
     Route: 048
  5. ACTEMRA [Suspect]
     Active Substance: TOCILIZUMAB
     Indication: RHEUMATOID ARTHRITIS
     Dosage: DOSE INTERVAL UNCERTAINTY
     Route: 041
     Dates: start: 20090806
  6. EDIROL [Concomitant]
     Active Substance: ELDECALCITOL
     Route: 048
  7. ACETAMINOPHEN. [Suspect]
     Active Substance: ACETAMINOPHEN
     Dosage: SINGLE USE
     Route: 048
  8. TAKECAB [Concomitant]
     Active Substance: VONOPRAZAN FUMURATE
     Dosage: DOSAGE IS UNCERTAIN.
     Route: 048
  9. EDIROL [Concomitant]
     Active Substance: ELDECALCITOL
     Route: 048
     Dates: start: 20120607
  10. LUNESTA [Concomitant]
     Active Substance: ESZOPICLONE
     Dosage: DOSAGE IS UNCERTAIN.
     Route: 048
  11. ACTEMRA [Suspect]
     Active Substance: TOCILIZUMAB
     Indication: RHEUMATOID ARTHRITIS
     Dosage: DOSE INTERVAL UNCERTAINTY?MOST RECENT DOSE:28/DEC/2017
     Route: 058
     Dates: end: 20180105
  12. CONTOMIN [Concomitant]
     Active Substance: CHLORPROMAZINE
     Dosage: DOSAGE IS UNCERTAIN.
     Route: 048

REACTIONS (8)
  - Small intestine ulcer [Recovering/Resolving]
  - Anaemia [Recovering/Resolving]
  - Small intestinal perforation [Unknown]
  - White blood cell count increased [Recovering/Resolving]
  - Gastrointestinal haemorrhage [Recovering/Resolving]
  - Peritonitis [Unknown]
  - Occult blood positive [Unknown]
  - Arthralgia [Unknown]

NARRATIVE: CASE EVENT DATE: 20150214
